FAERS Safety Report 7326452-5 (Version None)
Quarter: 2011Q1

REPORT INFORMATION
  Report Type: 
  Country: None (occurrence: None)
  Receive Date: 20110302
  Receipt Date: 20110224
  Transmission Date: 20110831
  Serious: Yes (Other)
  Sender: FDA-Public Use
  Company Number: US-ABBOTT-11P-163-0708044-00

PATIENT
  Sex: Female
  Weight: 103.06 kg

DRUGS (16)
  1. ASPIRIN [Concomitant]
     Indication: PRODUCT USED FOR UNKNOWN INDICATION
  2. FOLIC ACID [Concomitant]
     Indication: PROPHYLAXIS
  3. CALCIUM [Concomitant]
     Indication: PRODUCT USED FOR UNKNOWN INDICATION
     Dosage: 2 TABLETS AM; 1 TABLET AT HOUR OF SLEEP
  4. AMLODIPINE [Concomitant]
     Indication: CARDIAC DISORDER
  5. ZETIA [Concomitant]
     Indication: BLOOD CHOLESTEROL INCREASED
  6. FLAXSEE OIL TABLETS [Concomitant]
     Indication: PRODUCT USED FOR UNKNOWN INDICATION
  7. ZIAC [Concomitant]
     Indication: HYPERTENSION
  8. LOTEMAX [Concomitant]
     Indication: CATARACT OPERATION
  9. HUMIRA [Suspect]
     Indication: RHEUMATOID ARTHRITIS
     Dates: start: 20080101
  10. LISINOPRIL [Concomitant]
     Indication: HYPERTENSION
  11. PLAVIX [Concomitant]
     Indication: THROMBOSIS PROPHYLAXIS
  12. ISOSORBIDE DINITRATE [Concomitant]
     Indication: CARDIAC DISORDER
  13. MULTI-VITAMIN [Concomitant]
     Indication: PRODUCT USED FOR UNKNOWN INDICATION
  14. TIMOLOL [Concomitant]
     Indication: CATARACT OPERATION
  15. PREMIDONE [Concomitant]
     Indication: TREMOR
     Dosage: 1.5 TABLETS AM, 50 MG AT HOUR OF SLEEP
  16. METHOTREXATE [Concomitant]
     Indication: RHEUMATOID ARTHRITIS
     Dosage: 6 TABLETS EVERY WEEK

REACTIONS (3)
  - INFLAMMATION [None]
  - GOUT [None]
  - CORONARY ARTERY OCCLUSION [None]
